FAERS Safety Report 5928297-7 (Version None)
Quarter: 2008Q4

REPORT INFORMATION
  Report Type: 
  Country: None (occurrence: None)
  Receive Date: 20081022
  Receipt Date: 20081022
  Transmission Date: 20090506
  Serious: Yes (Hospitalization, Other)
  Sender: FDA-Public Use
  Company Number: None

PATIENT
  Age: 29 Year
  Sex: Female
  Weight: 44.4525 kg

DRUGS (1)
  1. YAZ [Suspect]
     Indication: CONTRACEPTION
     Dosage: 1 PIL DAILY PO
     Route: 048
     Dates: start: 20071109, end: 20080301

REACTIONS (24)
  - ACTIVITIES OF DAILY LIVING IMPAIRED [None]
  - AGGRESSION [None]
  - AGORAPHOBIA [None]
  - ALOPECIA [None]
  - AMNESIA [None]
  - ANXIETY DISORDER [None]
  - CHEST PAIN [None]
  - CRYING [None]
  - DEPRESSION [None]
  - DISTURBANCE IN ATTENTION [None]
  - DYSMENORRHOEA [None]
  - FEELING ABNORMAL [None]
  - GENERAL PHYSICAL HEALTH DETERIORATION [None]
  - HEART RATE INCREASED [None]
  - HORMONE LEVEL ABNORMAL [None]
  - HYPERSOMNIA [None]
  - LIBIDO DECREASED [None]
  - LOSS OF EMPLOYMENT [None]
  - MENORRHAGIA [None]
  - MENTAL DISORDER [None]
  - MIGRAINE [None]
  - PAIN [None]
  - SOCIAL AVOIDANT BEHAVIOUR [None]
  - VISION BLURRED [None]
